FAERS Safety Report 10364663 (Version 2)
Quarter: 2014Q3

REPORT INFORMATION
  Report Type: Spontaneous
  Country: FR (occurrence: FR)
  Receive Date: 20140806
  Receipt Date: 20140821
  Transmission Date: 20150326
  Serious: Yes (Hospitalization)
  Sender: FDA-Public Use
  Company Number: PHHY2014FR095554

PATIENT
  Age: 81 Year
  Sex: Female

DRUGS (7)
  1. FEMARA [Suspect]
     Active Substance: LETROZOLE
     Indication: BREAST CANCER
     Dosage: 1 G, QD
     Route: 048
     Dates: start: 201306, end: 201403
  2. COUMADINE [Suspect]
     Active Substance: WARFARIN SODIUM
     Dosage: 2 MG, QD
     Route: 048
  3. EUPANTOL [Suspect]
     Active Substance: PANTOPRAZOLE SODIUM
     Dosage: 40 MG, QD
     Route: 048
  4. LASILIX [Suspect]
     Active Substance: FUROSEMIDE
     Dosage: 40 MG, QD
  5. ACTONEL [Suspect]
     Active Substance: RISEDRONATE SODIUM
     Dosage: 1 DF, WEEKLY
     Route: 048
  6. IMOVANE [Suspect]
     Active Substance: ZOPICLONE
     Dosage: UNK UKN, UNK
     Route: 048
  7. ATACAND [Suspect]
     Active Substance: CANDESARTAN CILEXETIL
     Dosage: 8 MG, QD
     Route: 048

REACTIONS (1)
  - Systemic lupus erythematosus [Not Recovered/Not Resolved]

NARRATIVE: CASE EVENT DATE: 201403
